FAERS Safety Report 16118285 (Version 2)
Quarter: 2019Q3

REPORT INFORMATION
  Report Type: Spontaneous
  Country: US (occurrence: US)
  Receive Date: 20190326
  Receipt Date: 20190716
  Transmission Date: 20191004
  Serious: No
  Sender: FDA-Public Use
  Company Number: US-PFIZER INC-2017436633

PATIENT
  Age: 74 Year
  Sex: Female

DRUGS (1)
  1. DETROL [Suspect]
     Active Substance: TOLTERODINE TARTRATE
     Indication: POLLAKIURIA
     Dosage: 2 TABLETS (2 MG TOTAL) AS DIRECTED. UP TO FOUR TABLETS QD AS NEEDED
     Route: 048
     Dates: start: 20170908, end: 20190603

REACTIONS (1)
  - Pollakiuria [Unknown]
